FAERS Safety Report 6186510-8 (Version None)
Quarter: 2009Q2

REPORT INFORMATION
  Report Type: 
  Country: None (occurrence: None)
  Receive Date: 20090512
  Receipt Date: 20090428
  Transmission Date: 20091009
  Serious: Yes (Hospitalization)
  Sender: FDA-Public Use
  Company Number: CA-EISAI INC.-E3810-02796-SPO-CA

PATIENT
  Age: 90 Year
  Sex: Female

DRUGS (2)
  1. RABEPRAZOLE SODIUM [Suspect]
     Dosage: UNKNOWN
     Route: 048
  2. PLAVIX [Interacting]
     Dosage: UNKNOWN
     Route: 065

REACTIONS (1)
  - CHEST INJURY [None]
